FAERS Safety Report 6869886-5 (Version None)
Quarter: 2010Q3

REPORT INFORMATION
  Report Type: 
  Country: None (occurrence: None)
  Receive Date: 20100722
  Receipt Date: 20080920
  Transmission Date: 20110219
  Serious: No
  Sender: FDA-Public Use
  Company Number: US-PFIZER INC-2008074389

PATIENT
  Sex: Female
  Weight: 65.77 kg

DRUGS (9)
  1. CHANTIX [Suspect]
     Dates: start: 20080829, end: 20080903
  2. LORTAB [Concomitant]
  3. XANAX [Concomitant]
  4. MULTI-VITAMINS [Concomitant]
  5. CALCIUM [Concomitant]
  6. EVENING PRIMROSE OIL [Concomitant]
  7. TYLENOL [Concomitant]
  8. ADVIL LIQUI-GELS [Concomitant]
  9. ACETYLSALICYLIC ACID [Concomitant]

REACTIONS (2)
  - GINGIVAL BLEEDING [None]
  - MENORRHAGIA [None]
